FAERS Safety Report 24428491 (Version 1)
Quarter: 2024Q4

REPORT INFORMATION
  Report Type: Spontaneous
  Country: JP (occurrence: JP)
  Receive Date: 20241011
  Receipt Date: 20241011
  Transmission Date: 20250114
  Serious: Yes (Death, Other)
  Sender: MERCK
  Company Number: JP-MSD-2211JPN000623J

PATIENT
  Age: 64 Year
  Sex: Female

DRUGS (4)
  1. KEYTRUDA [Suspect]
     Active Substance: PEMBROLIZUMAB
     Indication: Endometrial cancer stage III
     Dosage: UNK, Q3W
     Route: 041
  2. LENVATINIB MESYLATE [Suspect]
     Active Substance: LENVATINIB MESYLATE
     Indication: Endometrial cancer stage III
     Dosage: 20 MILLIGRAM, QD
     Route: 048
  3. LENVATINIB MESYLATE [Suspect]
     Active Substance: LENVATINIB MESYLATE
     Dosage: 20 MILLIGRAM, 5 X PER WEEK
     Route: 048
  4. LENVATINIB MESYLATE [Suspect]
     Active Substance: LENVATINIB MESYLATE
     Dosage: 20 MILLIGRAM, 5 X PER WEEK
     Route: 048

REACTIONS (6)
  - Malignant neoplasm progression [Fatal]
  - Hypothyroidism [Unknown]
  - Immune thrombocytopenia [Unknown]
  - Hypertension [Unknown]
  - Proteinuria [Unknown]
  - Platelet count decreased [Unknown]
